FAERS Safety Report 12543901 (Version 1)
Quarter: 2016Q3

REPORT INFORMATION
  Report Type: Other
  Country: CA (occurrence: CA)
  Receive Date: 20160711
  Receipt Date: 20160711
  Transmission Date: 20161109
  Serious: Yes (Other)
  Sender: FDA-Public Use
  Company Number: CA-BAUSCH-BL-2016-016222

PATIENT
  Age: 23 Month
  Sex: Male

DRUGS (5)
  1. DEXAMETHASONE/TOBRAMYCIN SULFATE [Suspect]
     Active Substance: DEXAMETHASONE\TOBRAMYCIN
     Route: 047
  2. DEXAMETHASONE/TOBRAMYCIN SULFATE [Suspect]
     Active Substance: DEXAMETHASONE\TOBRAMYCIN
     Indication: POSTOPERATIVE CARE
     Route: 047
  3. GATIFLOXACIN. [Concomitant]
     Active Substance: GATIFLOXACIN
     Indication: PREOPERATIVE CARE
     Route: 047
  4. GATIFLOXACIN. [Concomitant]
     Active Substance: GATIFLOXACIN
     Indication: POSTOPERATIVE CARE
     Route: 047
  5. PHENYLEPHRINE HYDROCHLORIDE. [Suspect]
     Active Substance: PHENYLEPHRINE HYDROCHLORIDE
     Indication: PREOPERATIVE CARE
     Route: 047

REACTIONS (5)
  - Cellulitis streptococcal [Recovered/Resolved]
  - Drug administered to patient of inappropriate age [Recovered/Resolved]
  - Bacterial infection [Recovered/Resolved]
  - Pyrexia [Recovered/Resolved]
  - Irritability [Recovered/Resolved]
